FAERS Safety Report 9834372 (Version 1)
Quarter: 2014Q1

REPORT INFORMATION
  Report Type: Spontaneous
  Country: AT (occurrence: AT)
  Receive Date: 20140122
  Receipt Date: 20140122
  Transmission Date: 20141002
  Serious: Yes (Other)
  Sender: FDA-Public Use
  Company Number: AT-AMGEN-AUTSP2014003954

PATIENT
  Sex: Female
  Weight: 76 kg

DRUGS (1)
  1. ENBREL [Suspect]
     Indication: POLYARTHRITIS
     Dosage: 50 MG, UNK
     Route: 058
     Dates: start: 201307, end: 201310

REACTIONS (3)
  - Gouty tophus [Not Recovered/Not Resolved]
  - Gout [Not Recovered/Not Resolved]
  - Localised infection [Not Recovered/Not Resolved]
